FAERS Safety Report 11177388 (Version 1)
Quarter: 2015Q2

REPORT INFORMATION
  Report Type: Spontaneous
  Country: NL (occurrence: NL)
  Receive Date: 20150610
  Receipt Date: 20150610
  Transmission Date: 20150821
  Serious: Yes (Other)
  Sender: FDA-Public Use
  Company Number: NL-TEVA-568662ISR

PATIENT
  Sex: Male

DRUGS (1)
  1. IRBESARTAN TEVA 150 MG, FILMOMHULDE TABLETTEN [Suspect]
     Active Substance: IRBESARTAN

REACTIONS (1)
  - Hypoglycaemia [Not Recovered/Not Resolved]
